FAERS Safety Report 9186792 (Version 2)
Quarter: 2013Q3

REPORT INFORMATION
  Report Type: Spontaneous
  Country: US (occurrence: US)
  Receive Date: 20121102
  Receipt Date: 20130722
  Transmission Date: 20140515
  Serious: Yes (Other)
  Sender: FDA-Public Use
  Company Number: US-JNJFOC-20121015263

PATIENT
  Age: 42 Year
  Sex: Female
  Weight: 53.52 kg

DRUGS (11)
  1. REMICADE [Suspect]
     Indication: COLITIS ULCERATIVE
     Dosage: FOR A TOTAL OF 270 MG
     Route: 042
     Dates: start: 20121012, end: 20121012
  2. REMICADE [Suspect]
     Indication: CROHN^S DISEASE
     Dosage: FOR A TOTAL OF 270 MG
     Route: 042
     Dates: start: 20121012, end: 20121012
  3. BENADRYL [Concomitant]
     Indication: PREMEDICATION
     Dosage: SLOW WITH/SALINE FLUSH
     Route: 042
     Dates: start: 20121012
  4. DECADRON [Concomitant]
     Indication: PREMEDICATION
     Dosage: 10MG/50CC NORMAL SALINE OVER 15 MINUTES.
     Route: 065
     Dates: start: 20121012
  5. SYNTHROID [Concomitant]
     Indication: AUTOIMMUNE THYROIDITIS
     Route: 065
  6. ADVAIR [Concomitant]
     Indication: ASTHMA
     Dosage: 250-50 MICROGRAM
     Route: 065
  7. VITAMIN D3 [Concomitant]
     Indication: OSTEOPOROSIS
     Route: 065
  8. POTASSIUM [Concomitant]
     Indication: MALNUTRITION
     Route: 065
  9. CALCIUM [Concomitant]
     Indication: OSTEOPOROSIS
     Route: 065
  10. MULTIVITAMIN [Concomitant]
     Indication: MALNUTRITION
     Route: 065
  11. RANITIDINE [Concomitant]
     Route: 065

REACTIONS (7)
  - Weight increased [Unknown]
  - Face oedema [Recovered/Resolved]
  - Oedema peripheral [Recovered/Resolved]
  - Oedema [Recovered/Resolved]
  - Dyspnoea [Recovered/Resolved]
  - Cardiac failure congestive [Recovered/Resolved]
  - Dizziness [Recovered/Resolved]
